FAERS Safety Report 20437023 (Version 1)
Quarter: 2022Q1

REPORT INFORMATION
  Report Type: Spontaneous
  Country: US (occurrence: US)
  Receive Date: 20220207
  Receipt Date: 20220207
  Transmission Date: 20220423
  Serious: No
  Sender: FDA-Public Use
  Company Number: US-SA-SAC20220204000792

PATIENT
  Sex: Female

DRUGS (2)
  1. AUBAGIO [Suspect]
     Active Substance: TERIFLUNOMIDE
     Indication: Multiple sclerosis
     Dosage: 1 DF, QD
     Route: 048
     Dates: start: 20151015
  2. AUBAGIO [Suspect]
     Active Substance: TERIFLUNOMIDE
     Dosage: 14MG
     Route: 048

REACTIONS (8)
  - Balance disorder [Unknown]
  - Knee deformity [Unknown]
  - Bladder disorder [Unknown]
  - Depression [Unknown]
  - Cognitive disorder [Unknown]
  - Diarrhoea [Unknown]
  - Unevaluable event [Unknown]
  - Product dose omission issue [Unknown]
